FAERS Safety Report 8540230-0 (Version None)
Quarter: 2012Q3

REPORT INFORMATION
  Report Type: 
  Country: None (occurrence: None)
  Receive Date: 20120713
  Receipt Date: 20120629
  Transmission Date: 20120928
  Serious: Yes (Disabling)
  Sender: FDA-Public Use
  Company Number: AE-SPE-2012-001

PATIENT
  Sex: Male
  Weight: 31 kg

DRUGS (7)
  1. MEIACT FINE GRANULES (50 MG) [Suspect]
     Indication: SCARLET FEVER
     Dosage: 100 MG TID PC ORAL
     Route: 048
     Dates: start: 20120608, end: 20120608
  2. MEIACT FINE GRANULES (50 MG) [Suspect]
     Indication: PHARYNGITIS
     Dosage: 100 MG TID PC ORAL
     Route: 048
     Dates: start: 20120608, end: 20120608
  3. MEIACT FINE GRANULES (50 MG) [Suspect]
     Indication: SCARLET FEVER
     Dosage: 100 MG TID PC ORAL
     Route: 048
     Dates: start: 20120409, end: 20120413
  4. MEIACT FINE GRANULES (50 MG) [Suspect]
     Indication: PHARYNGITIS
     Dosage: 100 MG TID PC ORAL
     Route: 048
     Dates: start: 20120409, end: 20120413
  5. PSEUDOEPHEDRINE SYRUP [Concomitant]
  6. ACETAMINOPHEN [Concomitant]
  7. ATARAX [Concomitant]

REACTIONS (1)
  - HAEMATOCHEZIA [None]
